FAERS Safety Report 8259094-8 (Version None)
Quarter: 2012Q2

REPORT INFORMATION
  Report Type: 
  Country: None (occurrence: None)
  Receive Date: 20120404
  Receipt Date: 20120323
  Transmission Date: 20120825
  Serious: Yes (Hospitalization, Other)
  Sender: FDA-Public Use
  Company Number: US-SANOFI-AVENTIS-2012SA020538

PATIENT
  Age: 48 Year
  Sex: Male

DRUGS (3)
  1. PLAVIX [Suspect]
     Indication: STENT PLACEMENT
     Route: 048
     Dates: start: 20120321
  2. ALLEGRA [Suspect]
     Route: 048
  3. PLAVIX [Suspect]
     Route: 048
     Dates: start: 20120321

REACTIONS (3)
  - CORONARY ARTERY OCCLUSION [None]
  - MYOCARDIAL INFARCTION [None]
  - HAEMORRHAGE [None]
